FAERS Safety Report 25659703 (Version 1)
Quarter: 2025Q3

REPORT INFORMATION
  Report Type: Spontaneous
  Country: US (occurrence: None)
  Receive Date: 20250807
  Receipt Date: 20250807
  Transmission Date: 20251021
  Serious: Yes (unspecified)
  Sender: FDA-CTU
  Company Number: None

PATIENT
  Age: 81 Year
  Sex: Male
  Weight: 70.65 kg

DRUGS (1)
  1. JOURNAVX [Suspect]
     Active Substance: SUZETRIGINE
     Indication: Arthralgia
     Dosage: FREQUENCY : DAILY;?
     Route: 048

REACTIONS (2)
  - Blood creatinine increased [None]
  - Therapy interrupted [None]

NARRATIVE: CASE EVENT DATE: 20240624
